FAERS Safety Report 5997614-4 (Version None)
Quarter: 2008Q4

REPORT INFORMATION
  Report Type: 
  Country: None (occurrence: None)
  Receive Date: 20081212
  Receipt Date: 20081202
  Transmission Date: 20090506
  Serious: Yes (Other)
  Sender: FDA-Public Use
  Company Number: US-PFIZER INC-2008150779

PATIENT
  Sex: Male
  Weight: 106.12 kg

DRUGS (6)
  1. LYRICA [Suspect]
     Indication: NEURALGIA
     Dosage: 225 MG, 2X/DAY
     Route: 048
     Dates: start: 20080101
  2. GABAPENTIN [Suspect]
     Indication: NEURALGIA
     Dosage: 300 MG, 2X/DAY
     Route: 048
     Dates: start: 20080426, end: 20080101
  3. METOCLOPRAMIDE [Concomitant]
     Dosage: UNK
  4. PREVACID [Concomitant]
     Indication: DYSPEPSIA
     Dosage: UNK
  5. HYDROCHLOROTHIAZIDE [Concomitant]
     Indication: BLOOD PRESSURE
     Dosage: UNK
  6. NASONEX [Concomitant]
     Indication: SINUSITIS
     Dosage: UNK

REACTIONS (4)
  - ACTIVITIES OF DAILY LIVING IMPAIRED [None]
  - DISTURBANCE IN ATTENTION [None]
  - SLEEP APNOEA SYNDROME [None]
  - SPINAL CORD COMPRESSION [None]
